FAERS Safety Report 20713728 (Version 3)
Quarter: 2022Q4

REPORT INFORMATION
  Report Type: Spontaneous
  Country: US (occurrence: US)
  Receive Date: 20220415
  Receipt Date: 20221221
  Transmission Date: 20230113
  Serious: Yes (Life-Threatening, Hospitalization)
  Sender: FDA-Public Use
  Company Number: US-MYLANLABS-2022M1026065

PATIENT
  Age: 47 Year
  Sex: Female

DRUGS (5)
  1. ACETAMINOPHEN [Suspect]
     Active Substance: ACETAMINOPHEN
     Indication: Toothache
     Dosage: 1 GRAM, Q4H (FOR 2 TO 3 DAYS)
     Route: 048
  2. FOMEPIZOLE [Suspect]
     Active Substance: FOMEPIZOLE
     Indication: Overdose
     Dosage: 15 MILLIGRAM/KILOGRAM, OVER 30 MIN
     Route: 065
  3. FOMEPIZOLE [Suspect]
     Active Substance: FOMEPIZOLE
     Dosage: UNK, REPEAT DOSE 4 H AFTER CRRT
     Route: 065
  4. FOMEPIZOLE [Suspect]
     Active Substance: FOMEPIZOLE
     Dosage: UNK, ADDITIONAL DOSE OF FOMEPIZOLE AT HOUR 57
     Route: 065
  5. FOMEPIZOLE [Suspect]
     Active Substance: FOMEPIZOLE
     Dosage: UNK, FINAL DOSE AT HOUR 70.
     Route: 065

REACTIONS (6)
  - Overdose [Recovered/Resolved]
  - Drug-induced liver injury [Recovered/Resolved]
  - Acute kidney injury [Recovered/Resolved]
  - Hypotension [Recovered/Resolved]
  - Hypoglycaemia [Recovered/Resolved]
  - Off label use [Unknown]
